FAERS Safety Report 5738444-8 (Version None)
Quarter: 2008Q2

REPORT INFORMATION
  Report Type: 
  Country: None (occurrence: None)
  Receive Date: 20080513
  Receipt Date: 20080429
  Transmission Date: 20081010
  Serious: Yes (Hospitalization)
  Sender: FDA-Public Use
  Company Number: 2008BI004833

PATIENT
  Age: 54 Year
  Sex: Female

DRUGS (11)
  1. AVONEX [Suspect]
     Indication: MULTIPLE SCLEROSIS
     Dosage: IM
     Route: 030
  2. BYETTA [Concomitant]
  3. LORTAB [Concomitant]
  4. XANAX [Concomitant]
  5. AMIDRINE [Concomitant]
  6. AMARYL [Concomitant]
  7. PREDNISONE TAB [Concomitant]
  8. SYNTHROID [Concomitant]
  9. VESICARE [Concomitant]
  10. IMITREX [Concomitant]
  11. MAXALT [Concomitant]

REACTIONS (5)
  - ASTHMA [None]
  - CONDITION AGGRAVATED [None]
  - HYPERTENSION [None]
  - INFLUENZA [None]
  - MULTIPLE SCLEROSIS [None]
